FAERS Safety Report 13372650 (Version 1)
Quarter: 2017Q1

REPORT INFORMATION
  Report Type: Spontaneous
  Country: US (occurrence: US)
  Receive Date: 20170327
  Receipt Date: 20170327
  Transmission Date: 20170429
  Serious: Yes (Hospitalization, Other)
  Sender: FDA-Public Use
  Company Number: US-009507513-1703USA008318

PATIENT
  Age: 61 Year
  Sex: Female
  Weight: 99.79 kg

DRUGS (11)
  1. TIKOSYN [Suspect]
     Active Substance: DOFETILIDE
     Dosage: 125 MG, MORNING AND EVENING AT LEAST 12 HRS APART
     Route: 048
     Dates: start: 20161210
  2. AMITRIPTYLINE HYDROCHLORIDE. [Concomitant]
     Active Substance: AMITRIPTYLINE HYDROCHLORIDE
     Indication: SLEEP DISORDER
     Dosage: 25 MG, ONE TABLET AT BEDTIME
  3. SPIRONOLACTONE. [Concomitant]
     Active Substance: SPIRONOLACTONE
     Indication: BLOOD POTASSIUM ABNORMAL
     Dosage: 25 MG, QD
  4. L-THYROXIN [Concomitant]
     Active Substance: LEVOTHYROXINE SODIUM
     Indication: THYROID DISORDER
     Dosage: 50MCG, QD
  5. DILTIAZEM. [Suspect]
     Active Substance: DILTIAZEM
     Indication: ARRHYTHMIA
     Dosage: 180MG, QD
  6. ATORVASTATIN [Concomitant]
     Active Substance: ATORVASTATIN
     Indication: BLOOD CHOLESTEROL INCREASED
     Dosage: 40 MG, QD,STARTED PROBABLY A YEAR AGO
     Dates: start: 201603
  7. COZAAR [Suspect]
     Active Substance: LOSARTAN POTASSIUM
     Indication: ARRHYTHMIA
     Dosage: UNK
     Route: 048
  8. TIKOSYN [Suspect]
     Active Substance: DOFETILIDE
     Indication: ATRIAL FIBRILLATION
     Dosage: 250 MICROGRAM,IN THE EVENING ONCE A DAY
     Route: 048
     Dates: start: 20161208, end: 20161210
  9. LIOTHYRONINE SODIUM. [Concomitant]
     Active Substance: LIOTHYRONINE SODIUM
     Indication: THYROID DISORDER
     Dosage: TWO TABLETS EVERY MORNING
  10. SAVAYSA [Concomitant]
     Active Substance: EDOXABAN TOSYLATE
     Indication: ANTICOAGULANT THERAPY
     Dosage: 60 MG, QD,TAKING SEVERAL MONTHS BEFORE ABLATION, AROUND SEPTEMBER OR OCTOBER
     Route: 048
     Dates: start: 201609
  11. MAGNESIUM (UNSPECIFIED) [Concomitant]
     Active Substance: MAGNESIUM
     Indication: GASTROINTESTINAL DISORDER
     Dosage: 500MG IN MORNING AND AT NIGHT

REACTIONS (3)
  - Cardiac ablation [Unknown]
  - Electrocardiogram QT prolonged [Recovered/Resolved]
  - Headache [Recovered/Resolved]

NARRATIVE: CASE EVENT DATE: 20161208
